FAERS Safety Report 22951715 (Version 2)
Quarter: 2023Q4

REPORT INFORMATION
  Report Type: Report from Study
  Country: US (occurrence: US)
  Receive Date: 20230918
  Receipt Date: 20231214
  Transmission Date: 20240110
  Serious: Yes (Other)
  Sender: FDA-Public Use
  Company Number: US-TAKEDA-2021TUS011062

PATIENT
  Sex: Female

DRUGS (1)
  1. HUMAN IMMUNOGLOBULIN G [Suspect]
     Active Substance: HUMAN IMMUNOGLOBULIN G
     Indication: Immunodeficiency common variable
     Dosage: UNK
     Route: 042

REACTIONS (6)
  - Hernia [Unknown]
  - Respiratory disorder [Unknown]
  - Vein collapse [Unknown]
  - Gastrointestinal disorder [Unknown]
  - Illness [Unknown]
  - Inappropriate schedule of product administration [Unknown]
